FAERS Safety Report 18424470 (Version 2)
Quarter: 2020Q4

REPORT INFORMATION
  Report Type: Report from Study
  Country: None (occurrence: IT)
  Receive Date: 20201026
  Receipt Date: 20201029
  Transmission Date: 20210114
  Serious: Yes (Hospitalization)
  Sender: FDA-Public Use
  Company Number: IT-ABBVIE-20K-083-3620134-00

PATIENT
  Age: 74 Year
  Sex: Male

DRUGS (2)
  1. DUODOPA [Suspect]
     Active Substance: CARBIDOPA\LEVODOPA
     Indication: PARKINSON^S DISEASE
     Dosage: DAILY DOSE: 1388MG; PUMP SETTING: MD: 3+3 CR: 4,2 (14H), ED: 3,
     Route: 050
     Dates: start: 20150113
  2. DUODOPA [Suspect]
     Active Substance: CARBIDOPA\LEVODOPA

REACTIONS (2)
  - Myelopathy [Unknown]
  - Cervical spinal stenosis [Unknown]

NARRATIVE: CASE EVENT DATE: 202009
